FAERS Safety Report 15499510 (Version 1)
Quarter: 2018Q4

REPORT INFORMATION
  Report Type: Spontaneous
  Country: US (occurrence: US)
  Receive Date: 20181008
  Receipt Date: 20181008
  Transmission Date: 20190205
  Serious: Yes (Hospitalization)
  Sender: FDA-Public Use
  Company Number: None

PATIENT
  Age: 73 Year
  Sex: Male

DRUGS (2)
  1. METHOTREXATE 50MG/2ML [Concomitant]
     Active Substance: METHOTREXATE
     Dates: start: 20180307
  2. HUMIRA [Suspect]
     Active Substance: ADALIMUMAB
     Indication: PRODUCT USED FOR UNKNOWN INDICATION
     Route: 058
     Dates: start: 20180307

REACTIONS (3)
  - Product dose omission [None]
  - Condition aggravated [None]
  - Surgery [None]

NARRATIVE: CASE EVENT DATE: 20181003
